FAERS Safety Report 18034016 (Version 4)
Quarter: 2020Q4

REPORT INFORMATION
  Report Type: Spontaneous
  Country: JP (occurrence: JP)
  Receive Date: 20200716
  Receipt Date: 20201111
  Transmission Date: 20210113
  Serious: Yes (Hospitalization, Other)
  Sender: FDA-Public Use
  Company Number: JP-009507513-2007JPN000379J

PATIENT
  Age: 63 Year
  Sex: Male
  Weight: 58 kg

DRUGS (5)
  1. CARBOPLATIN. [Concomitant]
     Active Substance: CARBOPLATIN
     Indication: LUNG ADENOCARCINOMA STAGE IV
     Dosage: 530 MILLIGRAM
     Route: 041
     Dates: start: 20191031, end: 20200213
  2. PEMETREXED DISODIUM [Concomitant]
     Active Substance: PEMETREXED DISODIUM
     Indication: LUNG ADENOCARCINOMA STAGE IV
     Dosage: 830 MILLIGRAM
     Route: 041
     Dates: start: 20191031, end: 20200609
  3. KEYTRUDA [Suspect]
     Active Substance: PEMBROLIZUMAB
     Dosage: 200 MILLIGRAM, Q3W
     Route: 041
     Dates: start: 20200319, end: 20200609
  4. G LASTA [Suspect]
     Active Substance: PEGFILGRASTIM
     Indication: WHITE BLOOD CELL COUNT DECREASED
     Dosage: 3.6 MILLIGRAM
     Route: 058
     Dates: start: 20200610
  5. KEYTRUDA [Suspect]
     Active Substance: PEMBROLIZUMAB
     Indication: LUNG ADENOCARCINOMA STAGE IV
     Dosage: 200 MILLIGRAM, Q3W
     Route: 041
     Dates: start: 20191031, end: 20200213

REACTIONS (2)
  - White blood cell count decreased [Recovering/Resolving]
  - Aortitis [Recovered/Resolved]

NARRATIVE: CASE EVENT DATE: 20191111
